FAERS Safety Report 7584493-7 (Version None)
Quarter: 2011Q2

REPORT INFORMATION
  Report Type: 
  Country: None (occurrence: None)
  Receive Date: 20110630
  Receipt Date: 20110615
  Transmission Date: 20111010
  Serious: No
  Sender: FDA-Public Use
  Company Number: US-B.I. PHARMACEUTICALS,INC./RIDGEFIELD-2011-BP-13943BP

PATIENT
  Age: 78 Year
  Sex: Female
  Weight: 66.68 kg

DRUGS (17)
  1. PRADAXA [Suspect]
     Dates: start: 20110524, end: 20110528
  2. FEXOFENADINE HCL [Concomitant]
  3. ALBUTEROL SULFATE AUTOHALER [Concomitant]
     Route: 055
  4. COENZYME Q10 [Concomitant]
  5. LATANOPROST [Concomitant]
  6. LOSARTAN POTASSIUM [Concomitant]
  7. AZOPT [Concomitant]
  8. OMEPRAZOLE [Concomitant]
  9. METOPROLOL SUCCINATE [Concomitant]
  10. KETOCONAZOLE [Concomitant]
  11. FLOVENT [Concomitant]
     Route: 055
  12. EX/STRENGTH TYLENOL [Concomitant]
  13. CALCIUM PLUS VIT D [Concomitant]
  14. PRADAXA [Suspect]
     Indication: ATRIAL FIBRILLATION
     Dosage: 300 MG
     Route: 048
     Dates: start: 20110322, end: 20110524
  15. LAMOTRIGINE [Concomitant]
  16. SIMVASTATIN [Concomitant]
  17. METAMUCIL-2 [Concomitant]
     Dosage: 2 RT

REACTIONS (3)
  - RASH [None]
  - URTICARIA [None]
  - FLUSHING [None]
